FAERS Safety Report 6717473-1 (Version None)
Quarter: 2010Q2

REPORT INFORMATION
  Report Type: 
  Country: None (occurrence: None)
  Receive Date: 20100510
  Receipt Date: 20100505
  Transmission Date: 20101027
  Serious: Yes (Hospitalization)
  Sender: FDA-Public Use
  Company Number: CH-ROCHE-701450

PATIENT
  Age: 84 Year
  Sex: Female

DRUGS (5)
  1. TORADOL [Suspect]
     Indication: PAIN
     Route: 048
     Dates: start: 20100331, end: 20100402
  2. SINTROM [Suspect]
     Indication: THROMBOSIS PROPHYLAXIS
     Dosage: DURATION OF USE: LONG TERM, DRUG TAKEN AS NECESSARY
     Route: 048
     Dates: end: 20100404
  3. GLIBESIFAR [Concomitant]
     Route: 048
  4. METFORMIN HYDROCHLORIDE [Concomitant]
     Route: 048
  5. DAFALGAN [Concomitant]
     Route: 048

REACTIONS (5)
  - ANAEMIA [None]
  - GASTRITIS EROSIVE [None]
  - HAEMATEMESIS [None]
  - PROTHROMBIN TIME PROLONGED [None]
  - UPPER GASTROINTESTINAL HAEMORRHAGE [None]
